FAERS Safety Report 4780396-1 (Version None)
Quarter: 2005Q3

REPORT INFORMATION
  Report Type: 
  Country: None (occurrence: None)
  Receive Date: 20050926
  Receipt Date: 20050926
  Transmission Date: 20060218
  Serious: No
  Sender: FDA-Public Use
  Company Number: None

PATIENT
  Age: 25 Year
  Sex: Male

DRUGS (1)
  1. OMNIPAQUE 350 [Suspect]
     Dosage: 350 MG ONE TIME IV
     Route: 042
     Dates: start: 20050921, end: 20050921

REACTIONS (1)
  - URTICARIA [None]
